FAERS Safety Report 19964808 (Version 4)
Quarter: 2022Q2

REPORT INFORMATION
  Report Type: Report from Study
  Country: CN (occurrence: CN)
  Receive Date: 20211018
  Receipt Date: 20220425
  Transmission Date: 20220721
  Serious: Yes (Hospitalization)
  Sender: FDA-Public Use
  Company Number: NVSC2021CN233020

PATIENT
  Age: 61 Year
  Sex: Female

DRUGS (11)
  1. BROLUCIZUMAB [Suspect]
     Active Substance: BROLUCIZUMAB
     Indication: Diabetic retinopathy
     Dosage: 6 MG, OTHER
     Route: 031
     Dates: start: 20210628
  2. BROLUCIZUMAB [Suspect]
     Active Substance: BROLUCIZUMAB
     Dosage: UNK
     Route: 031
     Dates: start: 20210804, end: 20210915
  3. GATIFLOXACIN [Concomitant]
     Active Substance: GATIFLOXACIN
     Indication: Prophylaxis
     Dosage: 0.1 ML, QID
     Route: 065
     Dates: start: 20211011, end: 20211021
  4. PREDNISOLONE ACETATE [Concomitant]
     Active Substance: PREDNISOLONE ACETATE
     Indication: Prophylaxis
     Dosage: 0.1 ML, QID
     Route: 065
     Dates: start: 20211011, end: 20211021
  5. TOBRAMYCIN AND DEXAMETHASONE [Concomitant]
     Active Substance: DEXAMETHASONE\TOBRAMYCIN
     Indication: Prophylaxis
     Dosage: UNK
     Route: 065
     Dates: start: 20211011, end: 20211021
  6. ASPIRIN [Concomitant]
     Active Substance: ASPIRIN
     Indication: Coronary arterial stent insertion
     Dosage: UNK
     Route: 065
     Dates: start: 2017
  7. TELMISARTAN [Concomitant]
     Active Substance: TELMISARTAN
     Indication: Coronary arterial stent insertion
     Dosage: UNK
     Route: 065
     Dates: start: 2017
  8. ATORVASTATIN CALCIUM [Concomitant]
     Active Substance: ATORVASTATIN CALCIUM
     Indication: Coronary arterial stent insertion
     Dosage: UNK
     Route: 065
     Dates: start: 2017
  9. CLOPIDOGREL BISULFATE [Concomitant]
     Active Substance: CLOPIDOGREL BISULFATE
     Indication: Coronary arterial stent insertion
     Dosage: UNK
     Route: 065
     Dates: start: 2017
  10. DICLOFENAC SODIUM [Concomitant]
     Active Substance: DICLOFENAC SODIUM
     Indication: Prophylaxis
     Dosage: 0.4 ML, BID
     Route: 065
     Dates: start: 20211011, end: 20211011
  11. COMPOUND TROPICAMIDE [Concomitant]
     Indication: Prophylaxis
     Dosage: UNK
     Route: 065
     Dates: start: 20211011

REACTIONS (1)
  - Tractional retinal detachment [Recovered/Resolved]

NARRATIVE: CASE EVENT DATE: 20211011
